FAERS Safety Report 22374750 (Version 2)
Quarter: 2023Q2

REPORT INFORMATION
  Report Type: Spontaneous
  Country: JP (occurrence: JP)
  Receive Date: 20230526
  Receipt Date: 20230616
  Transmission Date: 20230721
  Serious: Yes (Hospitalization)
  Sender: FDA-Public Use
  Company Number: JP-Eisai-202301902_ART_P_1

PATIENT
  Age: 75 Year
  Sex: Female

DRUGS (3)
  1. ARICEPT [Suspect]
     Active Substance: DONEPEZIL HYDROCHLORIDE
     Indication: Dementia
     Route: 048
     Dates: end: 20230518
  2. BELSOMRA [Concomitant]
     Active Substance: SUVOREXANT
     Route: 065
  3. BLONANSERIN [Concomitant]
     Active Substance: BLONANSERIN
     Route: 065

REACTIONS (1)
  - Loss of consciousness [Recovering/Resolving]

NARRATIVE: CASE EVENT DATE: 20230518
